FAERS Safety Report 9130045 (Version 1)
Quarter: 2013Q1

REPORT INFORMATION
  Report Type: Spontaneous
  Country: GB (occurrence: GB)
  Receive Date: 20130228
  Receipt Date: 20130228
  Transmission Date: 20140127
  Serious: Yes (Death)
  Sender: FDA-Public Use
  Company Number: GB-OTSUKA-EU-2012-10450

PATIENT
  Sex: 0

DRUGS (1)
  1. SAMSCA [Suspect]
     Indication: HYPONATRAEMIA
     Dosage: UNK, UNKNOWN
     Route: 065
     Dates: start: 20121214

REACTIONS (1)
  - Death [Fatal]
